FAERS Safety Report 17249268 (Version 3)
Quarter: 2020Q1

REPORT INFORMATION
  Report Type: Report from Study
  Country: US (occurrence: US)
  Receive Date: 20200108
  Receipt Date: 20200310
  Transmission Date: 20200409
  Serious: Yes (Hospitalization)
  Sender: FDA-Public Use
  Company Number: US-ACTELION-A-US2018-183105

PATIENT
  Age: 59 Year
  Sex: Female
  Weight: 74.38 kg

DRUGS (4)
  1. ADEMPAS [Concomitant]
     Active Substance: RIOCIGUAT
     Dosage: UNK
     Route: 048
  2. ADEMPAS [Concomitant]
     Active Substance: RIOCIGUAT
     Dosage: UNK
     Route: 048
  3. OPSUMIT [Suspect]
     Active Substance: MACITENTAN
     Indication: PULMONARY HYPERTENSION
     Dosage: 10 MG, QD
     Route: 048
     Dates: start: 20181023
  4. NIFEDIPINE. [Concomitant]
     Active Substance: NIFEDIPINE

REACTIONS (27)
  - Oesophageal disorder [Unknown]
  - Malaise [Unknown]
  - Arthralgia [Unknown]
  - Blister [Unknown]
  - Diarrhoea [Unknown]
  - Fluid retention [Unknown]
  - Pulmonary oedema [Unknown]
  - Urinary tract infection [Unknown]
  - Hospitalisation [Unknown]
  - Dehydration [Unknown]
  - Nasopharyngitis [Unknown]
  - Peripheral swelling [Unknown]
  - Nasal congestion [Unknown]
  - Adverse event [Unknown]
  - Anaemia [Recovering/Resolving]
  - Haemoglobin decreased [Recovering/Resolving]
  - Blood creatinine increased [Unknown]
  - Vomiting [Unknown]
  - Tonsillitis [Unknown]
  - Gastroenteritis [Unknown]
  - Epistaxis [Unknown]
  - Renal disorder [Unknown]
  - Hypotension [Unknown]
  - Bronchitis [Unknown]
  - Abdominal pain upper [Unknown]
  - Cough [Unknown]
  - Nausea [Unknown]

NARRATIVE: CASE EVENT DATE: 201911
